FAERS Safety Report 16590947 (Version 3)
Quarter: 2022Q1

REPORT INFORMATION
  Report Type: Spontaneous
  Country: PL (occurrence: PL)
  Receive Date: 20190718
  Receipt Date: 20220315
  Transmission Date: 20220423
  Serious: Yes (Hospitalization, Other)
  Sender: FDA-Public Use
  Company Number: PL-AUROBINDO-AUR-APL-2019-040963

PATIENT
  Age: 76 Year
  Sex: Male

DRUGS (6)
  1. ATORVASTATIN [Suspect]
     Active Substance: ATORVASTATIN
     Indication: Product used for unknown indication
     Dosage: 20 MG, UNK
     Route: 065
  2. CLOPIDOGREL [Suspect]
     Active Substance: CLOPIDOGREL BISULFATE
     Indication: Product used for unknown indication
     Dosage: 75 MG, UNK
     Route: 065
  3. NEBIVOLOL [Suspect]
     Active Substance: NEBIVOLOL
     Indication: Product used for unknown indication
     Dosage: 5 MG, UNK
     Route: 065
  4. PANTOPRAZOLE [Suspect]
     Active Substance: PANTOPRAZOLE
     Indication: Product used for unknown indication
     Dosage: 20 MG, UNK
     Route: 065
  5. RAMIPRIL [Suspect]
     Active Substance: RAMIPRIL
     Indication: Product used for unknown indication
     Dosage: 5 MG, UNK
     Route: 065
  6. ASPIRIN [Suspect]
     Active Substance: ASPIRIN
     Indication: Product used for unknown indication
     Dosage: 75 MILLIGRAM
     Route: 065

REACTIONS (30)
  - Muscle injury [Unknown]
  - Arthralgia [Unknown]
  - Tachypnoea [Unknown]
  - Osteosclerosis [Unknown]
  - Thrombocytopenia [Unknown]
  - Inflammation [Unknown]
  - Abdominal tenderness [Unknown]
  - Azotaemia [Unknown]
  - Pallor [Unknown]
  - Lipid metabolism disorder [Unknown]
  - Spinal pain [Unknown]
  - Troponin increased [Unknown]
  - Cardiac arrest [Unknown]
  - Chest pain [Unknown]
  - Dry mouth [Unknown]
  - Prostate cancer [Unknown]
  - Hypertension [Unknown]
  - Normocytic anaemia [Unknown]
  - Rales [Unknown]
  - Bone disorder [Unknown]
  - Acute coronary syndrome [Unknown]
  - Blood creatinine increased [Unknown]
  - Joint range of motion decreased [Unknown]
  - Blood creatine phosphokinase MB increased [Unknown]
  - Abdominal pain upper [Unknown]
  - Acute myocardial infarction [Unknown]
  - Exercise tolerance decreased [Unknown]
  - Thoracic vertebral fracture [Unknown]
  - Cardiomyopathy [Unknown]
  - Blood creatine phosphokinase increased [Unknown]
